FAERS Safety Report 7353436-3 (Version None)
Quarter: 2011Q1

REPORT INFORMATION
  Report Type: 
  Country: None (occurrence: None)
  Receive Date: 20110310
  Receipt Date: 20110310
  Transmission Date: 20110831
  Serious: Yes (Other)
  Sender: FDA-Public Use
  Company Number: None

PATIENT
  Age: 15 Year
  Sex: Female
  Weight: 106.1417 kg

DRUGS (3)
  1. LEXAPRO [Concomitant]
  2. DEPAKOTE ER [Suspect]
     Dosage: 500MG     250MG @ HS
     Dates: start: 20110126
  3. DEPAKOTE ER [Suspect]
     Dosage: 500MG     250MG @ HS
     Dates: start: 20110301

REACTIONS (3)
  - DEPRESSION [None]
  - PRODUCT SUBSTITUTION ISSUE [None]
  - IRRITABILITY [None]
